FAERS Safety Report 20264490 (Version 1)
Quarter: 2021Q4

REPORT INFORMATION
  Report Type: Report from Study
  Country: US (occurrence: US)
  Receive Date: 20211231
  Receipt Date: 20211231
  Transmission Date: 20220303
  Serious: Yes (Other)
  Sender: FDA-Public Use
  Company Number: US-PHARMACOVIGILANCE-US-KAD-21-00412

PATIENT
  Age: 76 Year
  Sex: Male

DRUGS (1)
  1. BELUMOSUDIL [Suspect]
     Active Substance: BELUMOSUDIL
     Indication: Product used for unknown indication
     Dosage: 200 MILLIGRAM, BID
     Dates: start: 20210901

REACTIONS (3)
  - Fall [Unknown]
  - Skin laceration [Unknown]
  - Off label use [Unknown]

NARRATIVE: CASE EVENT DATE: 20210901
